FAERS Safety Report 15924649 (Version 2)
Quarter: 2019Q1

REPORT INFORMATION
  Report Type: Spontaneous
  Country: CA (occurrence: CA)
  Receive Date: 20190206
  Receipt Date: 20190214
  Transmission Date: 20190417
  Serious: Yes (Death)
  Sender: FDA-Public Use
  Company Number: CA-ROCHE-2259877

PATIENT
  Age: 69 Year
  Sex: Male
  Weight: 100 kg

DRUGS (3)
  1. PERINDOPRIL [Concomitant]
     Active Substance: PERINDOPRIL
     Indication: PRODUCT USED FOR UNKNOWN INDICATION
     Route: 065
  2. XOLAIR [Suspect]
     Active Substance: OMALIZUMAB
     Indication: ASTHMA
     Route: 058
     Dates: start: 20091119
  3. XOLAIR [Suspect]
     Active Substance: OMALIZUMAB
     Indication: CHRONIC OBSTRUCTIVE PULMONARY DISEASE
     Route: 058
     Dates: start: 20190123

REACTIONS (9)
  - Hypersensitivity [Fatal]
  - Cardiac arrest [Fatal]
  - Depressed level of consciousness [Fatal]
  - Angioedema [Fatal]
  - Swollen tongue [Fatal]
  - Product use in unapproved indication [Unknown]
  - Brain injury [Fatal]
  - Cyanosis [Fatal]
  - Off label use [Unknown]

NARRATIVE: CASE EVENT DATE: 20190131
